FAERS Safety Report 4916997-7 (Version None)
Quarter: 2006Q1

REPORT INFORMATION
  Report Type: 
  Country: None (occurrence: None)
  Receive Date: 20060216
  Receipt Date: 20060216
  Transmission Date: 20060701
  Serious: Yes (Hospitalization)
  Sender: FDA-Public Use
  Company Number: None

PATIENT
  Age: 44 Year
  Sex: Male
  Weight: 70 kg

DRUGS (1)
  1. TERBINAFINE HCL [Suspect]
     Indication: ONYCHOMYCOSIS
     Dosage: 250 MG PO Q DAY
     Route: 048
     Dates: start: 20051104, end: 20051106

REACTIONS (2)
  - ANAPHYLACTOID REACTION [None]
  - ANGIONEUROTIC OEDEMA [None]
